FAERS Safety Report 20169288 (Version 3)
Quarter: 2022Q1

REPORT INFORMATION
  Report Type: Spontaneous
  Country: US (occurrence: US)
  Receive Date: 20211210
  Receipt Date: 20220128
  Transmission Date: 20220423
  Serious: Yes (Hospitalization)
  Sender: FDA-Public Use
  Company Number: US-Global Blood Therapeutics Inc-US-GBT-21-04441

PATIENT
  Age: 62 Year
  Sex: Male

DRUGS (3)
  1. OXBRYTA [Suspect]
     Active Substance: VOXELOTOR
     Indication: Sickle cell disease
     Route: 048
     Dates: start: 202106, end: 202112
  2. OXBRYTA [Suspect]
     Active Substance: VOXELOTOR
     Indication: Sickle cell disease
     Route: 048
     Dates: start: 202201
  3. WHOLE BLOOD [Concomitant]
     Active Substance: WHOLE BLOOD
     Indication: Sickle cell disease
     Dosage: TWO UNITS
     Dates: start: 20220113, end: 20220113

REACTIONS (5)
  - Pneumonia [Unknown]
  - Sickle cell anaemia with crisis [Unknown]
  - Hypotension [Recovered/Resolved]
  - Product dose omission issue [Unknown]
  - Therapy non-responder [Unknown]

NARRATIVE: CASE EVENT DATE: 20211112
